FAERS Safety Report 23760109 (Version 1)
Quarter: 2024Q2

REPORT INFORMATION
  Report Type: Spontaneous
  Country: GB (occurrence: AE)
  Receive Date: 20240419
  Receipt Date: 20240419
  Transmission Date: 20240716
  Serious: Yes (Life-Threatening)
  Sender: FDA-Public Use
  Company Number: None

PATIENT
  Age: 58 Year
  Sex: Female
  Weight: 112 kg

DRUGS (6)
  1. SEMAGLUTIDE [Suspect]
     Active Substance: SEMAGLUTIDE
     Indication: Ill-defined disorder
     Dosage: UNK
     Dates: start: 20191001
  2. ATORVASTATIN [Concomitant]
     Active Substance: ATORVASTATIN
     Indication: Ill-defined disorder
     Dosage: ONE TO BE TAKEN EVERY DAY
     Dates: start: 20230619, end: 20240409
  3. CANAGLIFLOZIN [Concomitant]
     Active Substance: CANAGLIFLOZIN
     Indication: Ill-defined disorder
     Dosage: ONE TO BE TAKEN DAILY PREFERABLY BEFORE BREAKFAST
     Dates: start: 20220517, end: 20240409
  4. INDAPAMIDE [Concomitant]
     Active Substance: INDAPAMIDE
     Indication: Ill-defined disorder
     Dosage: ONE TO BE TAKEN EACH MORNING FOR BLOOD PRESSURE
     Dates: start: 20231106, end: 20240409
  5. MELOXICAM [Concomitant]
     Active Substance: MELOXICAM
     Indication: Ill-defined disorder
     Dosage: ONE TO BE TAKEN EACH DAY WITH FOODPRN
     Dates: start: 20230814
  6. PREMARIN [Concomitant]
     Active Substance: ESTROGENS, CONJUGATED
     Indication: Ill-defined disorder
     Dosage: ONE TO BE TAKEN EACH DAY
     Dates: start: 20240409

REACTIONS (1)
  - Ketoacidosis [Recovered/Resolved]

NARRATIVE: CASE EVENT DATE: 20231207
